FAERS Safety Report 10303599 (Version 3)
Quarter: 2015Q3

REPORT INFORMATION
  Report Type: Spontaneous
  Country: US (occurrence: US)
  Receive Date: 20140714
  Receipt Date: 20150814
  Transmission Date: 20151125
  Serious: Yes (Hospitalization)
  Sender: FDA-Public Use
  Company Number: US-GILEAD-2013-0077088

PATIENT
  Age: 84 Year
  Sex: Female
  Weight: 87.98 kg

DRUGS (12)
  1. FLUTICASONE [Concomitant]
     Active Substance: FLUTICASONE\FLUTICASONE PROPIONATE
  2. LOSARTAN POTASSIUM. [Concomitant]
     Active Substance: LOSARTAN POTASSIUM
  3. XOPENEX [Concomitant]
     Active Substance: LEVALBUTEROL HYDROCHLORIDE
  4. TAGAMET [Concomitant]
     Active Substance: CIMETIDINE
  5. LETAIRIS [Suspect]
     Active Substance: AMBRISENTAN
     Indication: PULMONARY HYPERTENSION
     Dosage: 5 MG, UNK
     Dates: start: 20130501, end: 20130611
  6. FUROSEMIDE. [Concomitant]
     Active Substance: FUROSEMIDE
  7. CITALOPRAM [Concomitant]
     Active Substance: CITALOPRAM HYDROBROMIDE
  8. LETAIRIS [Suspect]
     Active Substance: AMBRISENTAN
     Indication: SYSTEMIC LUPUS ERYTHEMATOSUS
  9. CALCIUM +D                         /00944201/ [Concomitant]
     Active Substance: CALCIUM\VITAMIN D
  10. SPIRIVA [Concomitant]
     Active Substance: TIOTROPIUM BROMIDE MONOHYDRATE
  11. ALLOPURINOL. [Concomitant]
     Active Substance: ALLOPURINOL
  12. ROPINIROLE. [Concomitant]
     Active Substance: ROPINIROLE

REACTIONS (2)
  - Oedema peripheral [Recovered/Resolved]
  - Cardiac failure congestive [Recovered/Resolved]

NARRATIVE: CASE EVENT DATE: 20130513
